FAERS Safety Report 6742720-X (Version None)
Quarter: 2010Q2

REPORT INFORMATION
  Report Type: 
  Country: None (occurrence: None)
  Receive Date: 20100526
  Receipt Date: 20091119
  Transmission Date: 20101027
  Serious: No
  Sender: FDA-Public Use
  Company Number: US-ABBOTT-09P-163-0610862-00

PATIENT
  Sex: Male

DRUGS (17)
  1. ZEMPLAR [Suspect]
     Indication: RENAL IMPAIRMENT
     Dosage: 1MG SEVEN DAYS A WEEK
     Dates: start: 20070101, end: 20090901
  2. ZEMPLAR [Suspect]
     Dosage: 1 MG 5 DAYS A WEEK
     Dates: start: 20090901, end: 20091112
  3. ZEMPLAR [Suspect]
     Dosage: 1 MG SEVEN DAYS A WEEK
     Dates: start: 20091112
  4. UNKNOWN MEDICATION FOR LOW HEMOGLOBIN [Concomitant]
     Indication: HAEMOGLOBIN DECREASED
     Dosage: 1 IN 2 WEEKS IF HGB IS LESS THAN 12
  5. METOLAZONE [Concomitant]
     Indication: RENAL HYPERTENSION
  6. FUROSEMIDE [Concomitant]
     Indication: RENAL IMPAIRMENT
  7. FERROUS SULFATE TAB [Concomitant]
     Indication: HAEMOGLOBIN DECREASED
  8. VITAMIN D [Concomitant]
     Indication: VITAMIN SUPPLEMENTATION
  9. LYRICA [Concomitant]
     Indication: DIABETIC FOOT
     Dosage: UNKNOWN
  10. SLOW NIACIN [Concomitant]
     Indication: BLOOD CHOLESTEROL INCREASED
  11. ALLOPURINOL [Concomitant]
     Indication: GOUT
  12. LOVASTATIN [Concomitant]
     Indication: BLOOD CHOLESTEROL INCREASED
  13. GLIMEPIRIDE [Concomitant]
     Indication: TYPE 1 DIABETES MELLITUS
  14. QUINAPRIL [Concomitant]
     Indication: HYPERTENSION
  15. ACTOS [Concomitant]
     Indication: DIABETES MELLITUS
  16. HYDRALAZINE HCL [Concomitant]
     Indication: HYPERTENSION
  17. LANTUS SLIDING SCALE [Concomitant]
     Indication: TYPE 1 DIABETES MELLITUS
     Dosage: 42 TO 44 UNITS, DEPENDING ON BLOOD SUGAR

REACTIONS (2)
  - BLOOD CALCIUM INCREASED [None]
  - HAEMOGLOBIN DECREASED [None]
